FAERS Safety Report 10771230 (Version 2)
Quarter: 2015Q1

REPORT INFORMATION
  Report Type: Spontaneous
  Country: NZ (occurrence: NZ)
  Receive Date: 20150206
  Receipt Date: 20150209
  Transmission Date: 20150721
  Serious: Yes (Death, Other)
  Sender: FDA-Public Use
  Company Number: PHHY2015NZ014268

PATIENT
  Age: 20 Year
  Sex: Female

DRUGS (8)
  1. IBUPROFEN. [Concomitant]
     Active Substance: IBUPROFEN
     Indication: RENAL COLIC
     Route: 048
  2. DICLOFENAC [Suspect]
     Active Substance: DICLOFENAC
     Indication: RENAL COLIC
     Dosage: 150 MG, UNK (75MG X 2 OR 150 MG AS A SINGLE INJECTION)
     Route: 030
  3. CODEINE PHOSPHATE [Concomitant]
     Active Substance: CODEINE PHOSPHATE
     Indication: RENAL COLIC
     Route: 048
  4. DICLOFENAC [Suspect]
     Active Substance: DICLOFENAC
     Indication: SPINA BIFIDA
  5. IBUPROFEN. [Concomitant]
     Active Substance: IBUPROFEN
     Indication: SPINA BIFIDA
  6. ACETAMINOPHEN. [Concomitant]
     Active Substance: ACETAMINOPHEN
     Indication: RENAL COLIC
     Route: 048
  7. ACETAMINOPHEN. [Concomitant]
     Active Substance: ACETAMINOPHEN
     Indication: SPINA BIFIDA
  8. CODEINE PHOSPHATE [Concomitant]
     Active Substance: CODEINE PHOSPHATE
     Indication: SPINA BIFIDA

REACTIONS (4)
  - Acute respiratory distress syndrome [Unknown]
  - Shock [Unknown]
  - Death [Fatal]
  - Necrotising fasciitis [Unknown]
